FAERS Safety Report 6309777-1 (Version None)
Quarter: 2009Q3

REPORT INFORMATION
  Report Type: 
  Country: None (occurrence: None)
  Receive Date: 20090814
  Receipt Date: 20090806
  Transmission Date: 20100115
  Serious: Yes (Hospitalization, Other)
  Sender: FDA-Public Use
  Company Number: US-AMGEN-QUU359058

PATIENT
  Sex: Female

DRUGS (5)
  1. NEUPOGEN [Suspect]
     Indication: CHEMOTHERAPY
  2. TAXOTERE [Concomitant]
     Dates: start: 20090101
  3. CYTOXAN [Concomitant]
     Dates: start: 20090101
  4. CISPLATIN [Concomitant]
     Dates: start: 20090101
  5. UNSPECIFIED ANTIHYPERTENSIVE AGENT [Concomitant]

REACTIONS (2)
  - LOCAL SWELLING [None]
  - RASH [None]
